FAERS Safety Report 10375849 (Version 1)
Quarter: 2014Q3

REPORT INFORMATION
  Report Type: Spontaneous
  Country: US (occurrence: US)
  Receive Date: 20140811
  Receipt Date: 20140811
  Transmission Date: 20150326
  Serious: Yes (Other)
  Sender: FDA-Public Use
  Company Number: US-GLAXOSMITHKLINE-A1083728A

PATIENT
  Age: 47 Year
  Sex: Female

DRUGS (12)
  1. CRESTOR [Concomitant]
     Active Substance: ROSUVASTATIN CALCIUM
  2. XANAX [Concomitant]
     Active Substance: ALPRAZOLAM
  3. BENLYSTA [Suspect]
     Active Substance: BELIMUMAB
     Indication: SYSTEMIC LUPUS ERYTHEMATOSUS
     Route: 042
     Dates: start: 2010
  4. ADDERALL XR [Concomitant]
     Active Substance: AMPHETAMINE ASPARTATE\AMPHETAMINE SULFATE\DEXTROAMPHETAMINE SACCHARATE\DEXTROAMPHETAMINE SULFATE
  5. MS CONTIN [Concomitant]
     Active Substance: MORPHINE SULFATE
  6. OXYCODONE [Concomitant]
     Active Substance: OXYCODONE
  7. LAMOTRIGINE. [Concomitant]
     Active Substance: LAMOTRIGINE
  8. NUVIGIL [Concomitant]
     Active Substance: ARMODAFINIL
  9. ZETIA [Concomitant]
     Active Substance: EZETIMIBE
  10. FUROSEMIDE. [Concomitant]
     Active Substance: FUROSEMIDE
  11. OLANZAPINE. [Concomitant]
     Active Substance: OLANZAPINE
  12. SOMA [Concomitant]
     Active Substance: CARISOPRODOL

REACTIONS (10)
  - Biopsy [Unknown]
  - Nasopharyngitis [Unknown]
  - Weight fluctuation [Unknown]
  - Eructation [Unknown]
  - Diarrhoea [Unknown]
  - Breast lump removal [Not Recovered/Not Resolved]
  - Feeling abnormal [Unknown]
  - Malaise [Unknown]
  - Menopause [Unknown]
  - Enteritis infectious [Unknown]

NARRATIVE: CASE EVENT DATE: 20140508
